FAERS Safety Report 8133918-7 (Version None)
Quarter: 2012Q1

REPORT INFORMATION
  Report Type: 
  Country: None (occurrence: None)
  Receive Date: 20120213
  Receipt Date: 20120202
  Transmission Date: 20120608
  Serious: Yes (Hospitalization)
  Sender: FDA-Public Use
  Company Number: GB-ASTRAZENECA-2011SE71102

PATIENT
  Age: 7976 Day
  Sex: Female
  Weight: 43 kg

DRUGS (2)
  1. SEROQUEL [Suspect]
     Route: 048
     Dates: start: 20111223
  2. TRAZODONE HCL [Concomitant]
     Route: 048

REACTIONS (5)
  - DRUG ABUSE [None]
  - RESPIRATORY ARREST [None]
  - INCORRECT DOSE ADMINISTERED [None]
  - CONVULSION [None]
  - HEART RATE INCREASED [None]
